FAERS Safety Report 6936049-4 (Version None)
Quarter: 2010Q3

REPORT INFORMATION
  Report Type: 
  Country: None (occurrence: None)
  Receive Date: 20100823
  Receipt Date: 20100810
  Transmission Date: 20110219
  Serious: Yes (Hospitalization, Other)
  Sender: FDA-Public Use
  Company Number: US-ELI_LILLY_AND_COMPANY-US201007002544

PATIENT
  Age: 58 Year
  Sex: Male

DRUGS (4)
  1. EFFIENT [Suspect]
     Indication: STENT PLACEMENT
     Dosage: 60 MG, OTHER
     Dates: start: 20100620
  2. EFFIENT [Suspect]
     Dosage: 10 MG, UNKNOWN
     Dates: end: 20100705
  3. LOVENOX [Concomitant]
  4. HEPARIN [Concomitant]

REACTIONS (1)
  - HEPARIN-INDUCED THROMBOCYTOPENIA [None]
